FAERS Safety Report 12540017 (Version 1)
Quarter: 2016Q3

REPORT INFORMATION
  Report Type: Spontaneous
  Country: US (occurrence: US)
  Receive Date: 20160708
  Receipt Date: 20160708
  Transmission Date: 20161109
  Serious: Yes (Hospitalization, Other)
  Sender: FDA-Public Use
  Company Number: US-GLAXOSMITHKLINE-US2016096787

PATIENT
  Age: 68 Year
  Sex: Female

DRUGS (5)
  1. ADVAIR DISKUS [Suspect]
     Active Substance: FLUTICASONE PROPIONATE\SALMETEROL XINAFOATE
     Indication: CHRONIC OBSTRUCTIVE PULMONARY DISEASE
     Dosage: 100/25 UG 1 PUFF(S), BID
     Route: 055
     Dates: start: 2014
  2. PROLIA [Concomitant]
     Active Substance: DENOSUMAB
  3. ALPRAZOLAM. [Concomitant]
     Active Substance: ALPRAZOLAM
  4. ADVAIR DISKUS [Suspect]
     Active Substance: FLUTICASONE PROPIONATE\SALMETEROL XINAFOATE
     Dosage: 100/50 UG BID
     Route: 055
  5. SYNTHROID [Concomitant]
     Active Substance: LEVOTHYROXINE SODIUM

REACTIONS (6)
  - Lung lobectomy [Recovered/Resolved]
  - Wrist fracture [Recovered/Resolved]
  - Thoracotomy [Recovered/Resolved]
  - Seizure [Unknown]
  - Brain neoplasm malignant [Unknown]
  - Syncope [Unknown]

NARRATIVE: CASE EVENT DATE: 2014
